FAERS Safety Report 8992365 (Version 3)
Quarter: 2013Q1

REPORT INFORMATION
  Report Type: Spontaneous
  Country: US (occurrence: US)
  Receive Date: 20121231
  Receipt Date: 20130125
  Transmission Date: 20140127
  Serious: Yes (Hospitalization)
  Sender: FDA-Public Use
  Company Number: US-JNJFOC-20121208634

PATIENT
  Age: 30 Year
  Sex: Male
  Weight: 74.84 kg

DRUGS (10)
  1. INVEGA SUSTENNA [Suspect]
     Indication: SCHIZOAFFECTIVE DISORDER
     Route: 030
     Dates: start: 20120904, end: 20120913
  2. INVEGA SUSTENNA [Suspect]
     Indication: SCHIZOAFFECTIVE DISORDER
     Route: 030
     Dates: start: 20121129, end: 20121129
  3. LATUDA [Concomitant]
     Indication: SCHIZOAFFECTIVE DISORDER
     Route: 048
     Dates: start: 201209, end: 20121203
  4. CITALOPRAM [Concomitant]
     Indication: ANTIDEPRESSANT THERAPY
     Route: 048
     Dates: start: 201209, end: 20121203
  5. CITALOPRAM [Concomitant]
     Indication: SCHIZOAFFECTIVE DISORDER
     Route: 048
     Dates: start: 201209, end: 20121203
  6. MIRTAZAPINE [Concomitant]
     Indication: ANTIDEPRESSANT THERAPY
     Route: 048
     Dates: start: 201209, end: 20121203
  7. MIRTAZAPINE [Concomitant]
     Indication: SCHIZOAFFECTIVE DISORDER
     Route: 048
     Dates: start: 201209, end: 20121203
  8. BENZTROPINE [Concomitant]
     Indication: ADVERSE DRUG REACTION
     Route: 065
     Dates: start: 201209, end: 20121203
  9. DIAZEPAM [Concomitant]
     Indication: ANTIDEPRESSANT THERAPY
     Route: 065
     Dates: start: 20121203
  10. RENVELA [Concomitant]
     Route: 065
     Dates: start: 20121203

REACTIONS (14)
  - Renal failure [Not Recovered/Not Resolved]
  - Rhabdomyolysis [Not Recovered/Not Resolved]
  - Pneumonia [Not Recovered/Not Resolved]
  - Speech disorder [Not Recovered/Not Resolved]
  - Dystonia [Recovering/Resolving]
  - Weight increased [Recovering/Resolving]
  - Hypersensitivity [Unknown]
  - Dysphagia [Not Recovered/Not Resolved]
  - Drooling [Not Recovered/Not Resolved]
  - Decreased appetite [Not Recovered/Not Resolved]
  - Musculoskeletal stiffness [Not Recovered/Not Resolved]
  - Tremor [Not Recovered/Not Resolved]
  - Back pain [Not Recovered/Not Resolved]
  - Restlessness [Not Recovered/Not Resolved]
